FAERS Safety Report 6329339-X (Version None)
Quarter: 2009Q3

REPORT INFORMATION
  Report Type: 
  Country: None (occurrence: None)
  Receive Date: 20090826
  Receipt Date: 20090818
  Transmission Date: 20100115
  Serious: Yes (Death, Other)
  Sender: FDA-Public Use
  Company Number: US-WATSON-2009-06729

PATIENT
  Age: 21 Year
  Sex: Male

DRUGS (3)
  1. CARBOPLATIN [Suspect]
     Indication: GERM CELL CANCER
     Dosage: 500 MG/M2, 4 COURSES
     Route: 042
  2. ETOPOSIDE [Suspect]
     Indication: GERM CELL CANCER
     Dosage: 150 MG/M2, 4 COURSES
     Route: 042
  3. BLEOMYCIN SULFATE [Suspect]
     Indication: GERM CELL CANCER
     Dosage: 15 MG/M2, 4 COURSES
     Route: 042

REACTIONS (4)
  - PANCYTOPENIA [None]
  - PNEUMONIA [None]
  - PULMONARY HAEMORRHAGE [None]
  - RESPIRATORY FAILURE [None]
